FAERS Safety Report 4843003-5 (Version None)
Quarter: 2005Q4

REPORT INFORMATION
  Report Type: 
  Country: None (occurrence: None)
  Receive Date: 20051201
  Receipt Date: 20010813
  Transmission Date: 20060501
  Serious: Yes (Hospitalization)
  Sender: FDA-Public Use
  Company Number: US-ROCHE-266102

PATIENT
  Age: 47 Year
  Sex: Male
  Weight: 94.1 kg

DRUGS (25)
  1. INTERFERON ALFA-2A [Suspect]
     Route: 058
     Dates: start: 20010723, end: 20011003
  2. RIBAVIRIN [Suspect]
     Dosage: WITH FOOD.
     Route: 048
     Dates: start: 20010723, end: 20010810
  3. LAMIVUDINE [Concomitant]
     Dates: start: 20000801
  4. ZIDOVUDINE [Concomitant]
     Dates: start: 20000801
  5. SERTRALINE HCL [Concomitant]
     Dates: start: 20000801
  6. EFAVIRENZ [Concomitant]
     Dates: start: 20000801
  7. ACETAMINOPHEN [Concomitant]
     Dates: start: 20010723
  8. IBUPROFEN [Concomitant]
     Dates: start: 20010723
  9. LANSOPRAZOLE [Concomitant]
     Dates: start: 20000815
  10. SILDENAFIL [Concomitant]
     Dates: start: 20010515
  11. TERBINAFINE CREAM [Concomitant]
     Dates: start: 20010515
  12. SALICYLIC ACID [Concomitant]
     Dates: start: 20010515
  13. UREA CREAM [Concomitant]
     Dates: start: 20010515
  14. TRIAMCINOLONE [Concomitant]
     Dates: start: 20010515
  15. TRETINOIN CREAM [Concomitant]
     Dates: start: 20010515
  16. PROCRIT [Concomitant]
     Dates: start: 20011002
  17. ZOLOFT [Concomitant]
     Dates: start: 20001219, end: 20010820
  18. NEFAZODONE HCL [Concomitant]
     Dates: start: 20010820
  19. TRAMADOL HCL [Concomitant]
     Dates: start: 20010820, end: 20010820
  20. ZINC OXIDE [Concomitant]
     Dates: start: 20010813
  21. TYLENOL [Concomitant]
     Route: 048
     Dates: start: 20010820
  22. LOPERAMIDE [Concomitant]
     Route: 048
     Dates: start: 20010820
  23. NAPROXEN [Concomitant]
     Route: 048
     Dates: start: 20010510
  24. TERBINAFINE [Concomitant]
  25. RABEPRAZOLE SODIUM [Concomitant]
     Route: 048
     Dates: start: 20010810

REACTIONS (10)
  - DEPRESSION [None]
  - DRUG DEPENDENCE [None]
  - GASTROENTERITIS [None]
  - GASTROENTERITIS VIRAL [None]
  - HAEMOLYTIC ANAEMIA [None]
  - HALLUCINATION, VISUAL [None]
  - RECTAL HAEMORRHAGE [None]
  - SELF-INJURIOUS IDEATION [None]
  - SOMNOLENCE [None]
  - WEIGHT DECREASED [None]
